FAERS Safety Report 15356630 (Version 1)
Quarter: 2018Q3

REPORT INFORMATION
  Report Type: Spontaneous
  Country: US (occurrence: US)
  Receive Date: 20180906
  Receipt Date: 20180906
  Transmission Date: 20181010
  Serious: Yes (Hospitalization, Other)
  Sender: FDA-Public Use
  Company Number: US-PFIZER INC-2018356128

PATIENT
  Age: 36 Year
  Sex: Male
  Weight: 81.63 kg

DRUGS (5)
  1. VIAGRA [Suspect]
     Active Substance: SILDENAFIL CITRATE
     Indication: ERECTILE DYSFUNCTION
     Dosage: 100 MG, UNK(SOMETIMES I TAKE IT TWO OR THREE TIMES A DAY)
  2. VIAGRA [Suspect]
     Active Substance: SILDENAFIL CITRATE
     Indication: ORGASM ABNORMAL
  3. PREDNISONE. [Suspect]
     Active Substance: PREDNISONE
     Dosage: UNK
  4. MOTRIN [Suspect]
     Active Substance: IBUPROFEN
     Indication: MYALGIA
     Dosage: 800 MG, UNK
  5. MOTRIN [Suspect]
     Active Substance: IBUPROFEN
     Dosage: 600 MG, UNK

REACTIONS (7)
  - Intentional product misuse [Unknown]
  - Priapism [Unknown]
  - Heat exhaustion [Unknown]
  - Phimosis [Unknown]
  - Erection increased [Unknown]
  - Orgasm abnormal [Unknown]
  - Penile swelling [Not Recovered/Not Resolved]

NARRATIVE: CASE EVENT DATE: 20180829
